FAERS Safety Report 6495220-9 (Version None)
Quarter: 2009Q4

REPORT INFORMATION
  Report Type: 
  Country: None (occurrence: None)
  Receive Date: 20091214
  Receipt Date: 20090514
  Transmission Date: 20100525
  Serious: No
  Sender: FDA-Public Use
  Company Number: US-BRISTOL-MYERS SQUIBB COMPANY-14624720

PATIENT
  Age: 42 Year
  Sex: Female
  Weight: 63 kg

DRUGS (8)
  1. ABILIFY [Suspect]
     Indication: BIPOLAR DISORDER
     Dosage: INCREASED TO 15MG.
  2. ABILIFY [Suspect]
     Indication: SCHIZOAFFECTIVE DISORDER
     Dosage: INCREASED TO 15MG.
  3. LITHIUM [Concomitant]
  4. PROLIXIN [Concomitant]
  5. COGENTIN [Concomitant]
  6. RESTORIL [Concomitant]
  7. TEMAZEPAM [Concomitant]
  8. PROTONIX [Concomitant]

REACTIONS (4)
  - AGGRESSION [None]
  - AGITATION [None]
  - AGORAPHOBIA [None]
  - HALLUCINATION, AUDITORY [None]
